FAERS Safety Report 24717493 (Version 1)
Quarter: 2024Q4

REPORT INFORMATION
  Report Type: Spontaneous
  Country: DE (occurrence: DE)
  Receive Date: 20241210
  Receipt Date: 20241210
  Transmission Date: 20250114
  Serious: Yes (Other)
  Sender: TEVA
  Company Number: None

PATIENT
  Age: 40 Year
  Sex: Male
  Weight: 98 kg

DRUGS (1)
  1. RISPERIDONE [Suspect]
     Active Substance: RISPERIDONE
     Indication: Delusional perception
     Dosage: FROM 10/24/24: 1 MG/D, FROM 11/04/24: 1.5 MG/D
     Route: 048
     Dates: start: 20241024, end: 20241105

REACTIONS (8)
  - Hyperprolactinaemia [Recovering/Resolving]
  - General physical health deterioration [Recovered/Resolved]
  - Pyrexia [Recovered/Resolved]
  - Alanine aminotransferase increased [Recovering/Resolving]
  - Dysuria [Recovered/Resolved]
  - Electrocardiogram T wave inversion [Unknown]
  - Gamma-glutamyltransferase increased [Recovering/Resolving]
  - Aspartate aminotransferase increased [Recovering/Resolving]

NARRATIVE: CASE EVENT DATE: 20241029
